FAERS Safety Report 16577132 (Version 2)
Quarter: 2019Q3

REPORT INFORMATION
  Report Type: Spontaneous
  Country: FR (occurrence: FR)
  Receive Date: 20190716
  Receipt Date: 20190725
  Transmission Date: 20191004
  Serious: Yes (Hospitalization, Other)
  Sender: FDA-Public Use
  Company Number: FR-AUROBINDO-AUR-APL-2019-039614

PATIENT

DRUGS (1)
  1. IBUPROFEN TABLETS [Suspect]
     Active Substance: IBUPROFEN
     Indication: PRODUCT USED FOR UNKNOWN INDICATION
     Dosage: UNK
     Route: 065

REACTIONS (31)
  - Procalcitonin [Unknown]
  - Prothrombin time prolonged [Not Recovered/Not Resolved]
  - Respiratory distress [Unknown]
  - Ventricular hypokinesia [Recovering/Resolving]
  - Haptoglobin decreased [Unknown]
  - Self-medication [Unknown]
  - Confusional state [Recovering/Resolving]
  - Condition aggravated [Unknown]
  - Skin necrosis [Unknown]
  - Depressed level of consciousness [Not Recovered/Not Resolved]
  - Livedo reticularis [Unknown]
  - Pyrexia [Unknown]
  - Anaemia [Not Recovered/Not Resolved]
  - Blood fibrinogen increased [Not Recovered/Not Resolved]
  - Epidermolysis [Unknown]
  - Inflammation [Unknown]
  - Myocarditis [Recovering/Resolving]
  - Haemolytic uraemic syndrome [Unknown]
  - Acute kidney injury [Recovered/Resolved]
  - Hyperlactacidaemia [Unknown]
  - Pneumonia streptococcal [Recovered/Resolved]
  - Haemoglobinaemia [Not Recovered/Not Resolved]
  - Thrombotic microangiopathy [Recovered/Resolved]
  - Anuria [Recovering/Resolving]
  - Metabolic acidosis [Unknown]
  - Leukocytosis [Unknown]
  - Blood lactate dehydrogenase increased [Not Recovered/Not Resolved]
  - Purpura [Unknown]
  - Troponin increased [Not Recovered/Not Resolved]
  - Thrombocytopenia [Unknown]
  - Skin lesion [Not Recovered/Not Resolved]
